FAERS Safety Report 9964581 (Version 1)
Quarter: 2014Q1

REPORT INFORMATION
  Report Type: Spontaneous
  Country: US (occurrence: US)
  Receive Date: 20140305
  Receipt Date: 20140305
  Transmission Date: 20141002
  Serious: No
  Sender: FDA-Public Use
  Company Number: US-AMGEN-USASP2013087034

PATIENT
  Age: 45 Year
  Sex: Female
  Weight: 131.52 kg

DRUGS (5)
  1. ENBREL [Suspect]
     Indication: PRODUCT USED FOR UNKNOWN INDICATION
     Dosage: 50 MG, QWK
     Route: 058
  2. LANSOPRAZOLE [Concomitant]
     Dosage: 30 MG, UNK,ODT
  3. FUROSEMIDE [Concomitant]
     Dosage: 40 MG, UNK
  4. DICLOFENAC [Concomitant]
     Dosage: 75 MG, UNK, EC
  5. CLOBETASOL [Concomitant]
     Dosage: 0.05 %, UNK

REACTIONS (4)
  - Gallbladder disorder [Unknown]
  - Abdominal pain upper [Unknown]
  - Headache [Unknown]
  - Fatigue [Unknown]
